FAERS Safety Report 6111783-7 (Version None)
Quarter: 2009Q1

REPORT INFORMATION
  Report Type: 
  Country: None (occurrence: None)
  Receive Date: 20090311
  Receipt Date: 20090226
  Transmission Date: 20090719
  Serious: Yes (Other)
  Sender: FDA-Public Use
  Company Number: PHHY2009JP07299

PATIENT
  Sex: Female

DRUGS (1)
  1. ZADITEN AL [Suspect]
     Indication: SEASONAL ALLERGY
     Dosage: 1 DF IN THE EVENING
     Dates: start: 20090225, end: 20090225

REACTIONS (4)
  - DIZZINESS [None]
  - HEAD DISCOMFORT [None]
  - NAUSEA [None]
  - VOMITING [None]
